FAERS Safety Report 12738633 (Version 2)
Quarter: 2016Q4

REPORT INFORMATION
  Report Type: Spontaneous
  Country: US (occurrence: US)
  Receive Date: 20160912
  Receipt Date: 20161117
  Transmission Date: 20170207
  Serious: No
  Sender: FDA-Public Use
  Company Number: US-SA-2016SA145912

PATIENT
  Sex: Female

DRUGS (12)
  1. SOLOSTAR [Concomitant]
     Active Substance: DEVICE
  2. METFORMIN [Concomitant]
     Active Substance: METFORMIN HYDROCHLORIDE
     Indication: TYPE 2 DIABETES MELLITUS
  3. LOSARTAN POTASSIUM. [Concomitant]
     Active Substance: LOSARTAN POTASSIUM
     Indication: HYPERTENSION
  4. SOLOSTAR [Concomitant]
     Active Substance: DEVICE
     Dates: end: 201608
  5. LEVOTHYROXINE. [Concomitant]
     Active Substance: LEVOTHYROXINE
     Indication: HYPOTHYROIDISM
  6. VITAMIN B12 [Concomitant]
     Active Substance: CYANOCOBALAMIN
     Dosage: DOSE:3000 UNIT(S)
  7. OMEPRAZOLE. [Concomitant]
     Active Substance: OMEPRAZOLE
     Indication: GASTROOESOPHAGEAL REFLUX DISEASE
  8. TOUJEO [Suspect]
     Active Substance: INSULIN GLARGINE
     Indication: TYPE 2 DIABETES MELLITUS
     Dosage: 37-40 UNITS
     Route: 065
     Dates: end: 201608
  9. BIOTIN [Concomitant]
     Active Substance: BIOTIN
     Dosage: DOSE: 10000 DOSE:10000 UNIT(S)
  10. LANTUS SOLOSTAR [Suspect]
     Active Substance: INSULIN GLARGINE
     Indication: TYPE 2 DIABETES MELLITUS
     Dosage: 35-40 UNITS
     Route: 065
  11. LANTUS SOLOSTAR [Suspect]
     Active Substance: INSULIN GLARGINE
     Indication: TYPE 2 DIABETES MELLITUS
     Dosage: 35-40 UNITS
     Route: 065
  12. VITAMIN D [Concomitant]
     Active Substance: CHOLECALCIFEROL
     Dosage: DOSE:5000 UNIT(S)

REACTIONS (8)
  - Urticaria [Not Recovered/Not Resolved]
  - Drug ineffective [Unknown]
  - Hypersensitivity [Not Recovered/Not Resolved]
  - Eye pruritus [Unknown]
  - Urticaria [Unknown]
  - Cough [Not Recovered/Not Resolved]
  - Blood glucose increased [Unknown]
  - Treatment noncompliance [Unknown]
